FAERS Safety Report 21088137 (Version 1)
Quarter: 2022Q3

REPORT INFORMATION
  Report Type: Report from Study
  Country: FR (occurrence: FR)
  Receive Date: 20220715
  Receipt Date: 20220715
  Transmission Date: 20221026
  Serious: Yes (Other)
  Sender: FDA-Public Use
  Company Number: FR-PFIZER INC-202200935843

PATIENT
  Age: 91 Year
  Sex: Female

DRUGS (1)
  1. METHOTREXATE SODIUM [Suspect]
     Active Substance: METHOTREXATE SODIUM
     Indication: Pemphigoid
     Dosage: 10 MG, WEEKLY

REACTIONS (4)
  - Anaemia [Unknown]
  - Disease progression [Unknown]
  - Asthenia [Unknown]
  - Drug intolerance [Unknown]
